FAERS Safety Report 16558065 (Version 2)
Quarter: 2025Q3

REPORT INFORMATION
  Report Type: Report from Study
  Country: EU (occurrence: EU)
  Receive Date: 20190711
  Receipt Date: 20250718
  Transmission Date: 20251020
  Serious: Yes (Other)
  Sender: ROCHE
  Company Number: EU-ROCHE-2352776

PATIENT
  Age: 85 Year
  Sex: Female
  Weight: 83.0 kg

DRUGS (1)
  1. HERCEPTIN [Suspect]
     Active Substance: TRASTUZUMAB
     Indication: Breast cancer
     Route: 058
     Dates: start: 20180101

REACTIONS (5)
  - White blood cell count abnormal [Unknown]
  - Blood creatinine increased [Unknown]
  - Diarrhoea [Unknown]
  - Dehydration [Unknown]
  - Nasopharyngitis [Unknown]
